FAERS Safety Report 8416114-5 (Version None)
Quarter: 2012Q2

REPORT INFORMATION
  Report Type: 
  Country: None (occurrence: None)
  Receive Date: 20120530
  Receipt Date: 20120517
  Transmission Date: 20120825
  Serious: Yes (Hospitalization)
  Sender: FDA-Public Use
  Company Number: 1291893

PATIENT
  Age: 49 Year
  Sex: Female
  Weight: 82 kg

DRUGS (9)
  1. DEXAMETHASONE [Concomitant]
  2. PIPERACILLIN AND TAZOBACTAM [Suspect]
     Dosage: INTRAVENOUS
     Route: 042
  3. ALLOPURINOL [Concomitant]
  4. CYTARABINE [Suspect]
     Dosage: INTRAVENOUS
     Route: 042
  5. LEVOTHYROXINE SODIUM [Concomitant]
  6. ONDANSETRON [Concomitant]
  7. DAUNORUBICIN HCL [Concomitant]
  8. VARENICLINE TARTRATE [Suspect]
     Dosage: 0.5MG, 1 EVERY 1 DAY, ORAL, 0.5MG, 2 EVERY 1 DAY, 1MG, 2 EVERY 1 DAY, ORAL
     Route: 048
  9. MYCAMINE [Concomitant]

REACTIONS (2)
  - ERYTHEMA [None]
  - RASH GENERALISED [None]
